FAERS Safety Report 4318078-2 (Version None)
Quarter: 2004Q1

REPORT INFORMATION
  Report Type: 
  Country: None (occurrence: None)
  Receive Date: 20040315
  Receipt Date: 20040302
  Transmission Date: 20041129
  Serious: Yes (Other)
  Sender: FDA-Public Use
  Company Number: NSADSS2002010288

PATIENT
  Sex: Female

DRUGS (9)
  1. REMICADE [Suspect]
     Indication: RHEUMATOID ARTHRITIS
     Dosage: INTRAVENOUS DRIP
     Route: 041
  2. TENORMIN (ATENOLOL) UNSPECIFIED [Concomitant]
  3. COZAAR (LOSARTAN POTASSIUM) UNSPECIFIED [Concomitant]
  4. PREVACID [Concomitant]
  5. FOLIC ACID (FOLIC ACID) UNSPECIFIED [Concomitant]
  6. RESTORIL (TEMAZEPAM) UNSPECIFIED [Concomitant]
  7. AMIODARONE (AMIODARONE) UNSPECIFIED [Concomitant]
  8. MTX (METHOTREXATE SODIUM) UNSPECIFIED [Concomitant]
  9. COUMADIN [Concomitant]

REACTIONS (3)
  - DEVICE INTERACTION [None]
  - PACING THRESHOLD INCREASED [None]
  - SICK SINUS SYNDROME [None]
